FAERS Safety Report 19808979 (Version 2)
Quarter: 2021Q4

REPORT INFORMATION
  Report Type: Report from Study
  Country: US (occurrence: US)
  Receive Date: 20210908
  Receipt Date: 20211004
  Transmission Date: 20220304
  Serious: Yes (Other)
  Sender: FDA-Public Use
  Company Number: US-HORIZON THERAPEUTICS-HZN-2021-006381

PATIENT

DRUGS (1)
  1. TEPEZZA [Suspect]
     Active Substance: TEPROTUMUMAB-TRBW
     Indication: Endocrine ophthalmopathy
     Dosage: UNK
     Route: 065
     Dates: start: 20210624

REACTIONS (4)
  - Bradycardia [Recovering/Resolving]
  - Mucosal disorder [Unknown]
  - Blood glucose increased [Not Recovered/Not Resolved]
  - Muscle spasms [Not Recovered/Not Resolved]
